FAERS Safety Report 12607664 (Version 1)
Quarter: 2016Q3

REPORT INFORMATION
  Report Type: Spontaneous
  Country: IT (occurrence: IT)
  Receive Date: 20160729
  Receipt Date: 20160729
  Transmission Date: 20161109
  Serious: Yes (Death)
  Sender: FDA-Public Use
  Company Number: IT-BAYER-2016-147033

PATIENT
  Age: 70 Year
  Sex: Female

DRUGS (4)
  1. ULTRAVIST [Suspect]
     Active Substance: IOPROMIDE
     Indication: POSITRON EMISSION TOMOGRAM
     Dosage: 80 ML, ONCE
     Route: 042
     Dates: start: 20160722, end: 20160722
  2. FLUORODEOXYGLUCOSE F 18 [Concomitant]
     Active Substance: FLUDEOXYGLUCOSE F-18
     Dosage: DAILY DOSE 360 MBQ
     Route: 042
     Dates: start: 20160722, end: 20160722
  3. ULTRAVIST [Suspect]
     Active Substance: IOPROMIDE
     Indication: PANCREATIC CARCINOMA
  4. ULTRAVIST [Suspect]
     Active Substance: IOPROMIDE
     Indication: LYMPHADENOPATHY

REACTIONS (6)
  - Dyspnoea [Fatal]
  - Cyanosis [Fatal]
  - Tachypnoea [Fatal]
  - Acute pulmonary oedema [Fatal]
  - Haemoptysis [Fatal]
  - Loss of consciousness [Fatal]

NARRATIVE: CASE EVENT DATE: 20160722
